FAERS Safety Report 5061786-9 (Version None)
Quarter: 2006Q3

REPORT INFORMATION
  Report Type: 
  Country: None (occurrence: None)
  Receive Date: 20060703
  Receipt Date: 20060119
  Transmission Date: 20061208
  Serious: No
  Sender: FDA-Public Use
  Company Number: 2006S1000555

PATIENT
  Age: 60 Year
  Sex: Male

DRUGS (14)
  1. CLOZAPINE [Suspect]
     Indication: SCHIZOPHRENIA, PARANOID TYPE
     Dosage: SEE IMAGE
     Route: 048
     Dates: start: 20050601, end: 20060201
  2. CLOZAPINE [Suspect]
     Indication: SCHIZOPHRENIA, PARANOID TYPE
     Dosage: SEE IMAGE
     Route: 048
     Dates: start: 20050601, end: 20060201
  3. CLOZAPINE [Suspect]
     Indication: SCHIZOPHRENIA, PARANOID TYPE
     Dosage: SEE IMAGE
     Route: 048
     Dates: start: 20050601, end: 20060201
  4. LISINOPRIL [Concomitant]
  5. TRAVOPROST [Concomitant]
  6. PARACETAMOL/HYDROCODONE BITARTRATE [Concomitant]
  7. IPRATROPIUM BROMIDE/SALBUTAMOL SULFATE [Concomitant]
  8. GLIMEPIRIDE [Concomitant]
  9. POTASSIUM CHLORIDE [Concomitant]
  10. ATENOLOL [Concomitant]
  11. DORZOLAMIDE HYDROCHLORIDE [Concomitant]
  12. RISPERIDONE [Concomitant]
  13. FLUOXETINE [Concomitant]
  14. VALPROATE SODIUM [Concomitant]

REACTIONS (1)
  - GRANULOCYTOPENIA [None]
